FAERS Safety Report 10889429 (Version 1)
Quarter: 2015Q1

REPORT INFORMATION
  Report Type: Spontaneous
  Country: US (occurrence: US)
  Receive Date: 20150305
  Receipt Date: 20150305
  Transmission Date: 20150721
  Serious: No
  Sender: FDA-Public Use
  Company Number: US-009507513-1503USA001901

PATIENT
  Age: 64 Year
  Sex: Female

DRUGS (1)
  1. BELSOMRA [Suspect]
     Active Substance: SUVOREXANT
     Indication: INSOMNIA
     Dosage: 1 DF, UNK
     Route: 048
     Dates: start: 20150223, end: 20150302

REACTIONS (2)
  - Hypoaesthesia oral [Unknown]
  - Nausea [Unknown]

NARRATIVE: CASE EVENT DATE: 2015
